FAERS Safety Report 21673146 (Version 4)
Quarter: 2023Q1

REPORT INFORMATION
  Report Type: Report from Study
  Country: FI (occurrence: FI)
  Receive Date: 20221202
  Receipt Date: 20230106
  Transmission Date: 20230417
  Serious: Yes (Other)
  Sender: FDA-Public Use
  Company Number: FI-MYLANLABS-2022M1133287

PATIENT
  Age: 21 Year
  Sex: Male

DRUGS (10)
  1. CLOZAPINE [Suspect]
     Active Substance: CLOZAPINE
     Indication: Schizophrenia
     Dosage: 50 MILLIGRAM
     Route: 065
     Dates: start: 20221121, end: 20221123
  2. CLOZAPINE [Suspect]
     Active Substance: CLOZAPINE
     Dosage: 75 MILLIGRAM
     Route: 065
     Dates: start: 20221123
  3. CLOZAPINE [Suspect]
     Active Substance: CLOZAPINE
     Dosage: 200 MILLIGRAM
     Route: 065
     Dates: start: 2022, end: 20221219
  4. CLOZAPINE [Suspect]
     Active Substance: CLOZAPINE
     Dosage: 250 MILLIGRAM, QD
     Route: 065
     Dates: start: 20221220
  5. CLOZAPINE [Suspect]
     Active Substance: CLOZAPINE
     Dosage: 200 MILLIGRAM
     Route: 065
     Dates: start: 202212
  6. CHLORPROMAZINE [Concomitant]
     Active Substance: CHLORPROMAZINE
     Indication: Schizophrenia
     Dosage: 100 MILLIGRAM, TID (100 MG TRICE PER DAY IF NEEDED)
     Route: 065
  7. CHLORPROMAZINE [Concomitant]
     Active Substance: CHLORPROMAZINE
     Dosage: 50 MILLIGRAM, BID
     Route: 065
  8. PERPHENAZINE [Concomitant]
     Active Substance: PERPHENAZINE
     Indication: Schizophrenia
     Dosage: UNK
     Route: 065
  9. OLANZAPINE [Concomitant]
     Active Substance: OLANZAPINE
     Indication: Schizophrenia
     Dosage: 30 MILLIGRAM, QD (30 MG IN THE EVENINGS)
     Route: 065
  10. PERPHENAZINE [Concomitant]
     Active Substance: PERPHENAZINE
     Indication: Schizophrenia
     Dosage: UNK
     Route: 030

REACTIONS (6)
  - Neutropenia [Recovering/Resolving]
  - C-reactive protein increased [Recovered/Resolved]
  - Psychotic disorder [Not Recovered/Not Resolved]
  - Agitation [Unknown]
  - White blood cell count decreased [Recovered/Resolved]
  - Off label use [Unknown]

NARRATIVE: CASE EVENT DATE: 20221121
